FAERS Safety Report 7144588-9 (Version None)
Quarter: 2010Q4

REPORT INFORMATION
  Report Type: 
  Country: None (occurrence: None)
  Receive Date: 20101208
  Receipt Date: 20100927
  Transmission Date: 20110411
  Serious: No
  Sender: FDA-Public Use
  Company Number: US-BAYER-201022387BCC

PATIENT
  Sex: Female
  Weight: 61.364 kg

DRUGS (6)
  1. MULTI-VITAMINS [Suspect]
     Indication: SINUS HEADACHE
     Dosage: 2 DF, ONCE
     Route: 048
  2. ACETYLSALICYLIC ACID({=100 MG) [Concomitant]
     Indication: PRODUCT USED FOR UNKNOWN INDICATION
  3. TRAMADOL HCL [Concomitant]
  4. MELOXICAM [Concomitant]
  5. CARDIOVASCULAR SYSTEM DRUGS [Concomitant]
  6. DIURETICS [Concomitant]

REACTIONS (1)
  - NO ADVERSE EVENT [None]
